FAERS Safety Report 5627819-3 (Version None)
Quarter: 2008Q1

REPORT INFORMATION
  Report Type: 
  Country: None (occurrence: None)
  Receive Date: 20080215
  Receipt Date: 20080201
  Transmission Date: 20080703
  Serious: Yes (Other)
  Sender: FDA-Public Use
  Company Number: PHFR2007GB01318

PATIENT
  Age: 39 Year
  Sex: Male

DRUGS (3)
  1. CLOZARIL [Suspect]
     Indication: SCHIZOPHRENIA
     Dosage: 375MG/UNK
     Route: 048
     Dates: start: 20051116
  2. VALPROATE SODIUM [Concomitant]
     Dosage: 1.5G DAILY
     Route: 065
  3. LEVOTHYROXINE SODIUM [Concomitant]
     Indication: HYPOTHYROIDISM
     Dosage: 150UG DAILY SINCE THE AGE OF 15
     Route: 065

REACTIONS (16)
  - ABDOMINAL PAIN UPPER [None]
  - ADVERSE DRUG REACTION [None]
  - ANORECTAL DISCOMFORT [None]
  - CONVULSION [None]
  - COUGH [None]
  - EJACULATION FAILURE [None]
  - EMOTIONAL DISTRESS [None]
  - GAIT DISTURBANCE [None]
  - HYPERSOMNIA [None]
  - INTESTINAL FUNCTIONAL DISORDER [None]
  - MORBID THOUGHTS [None]
  - SALIVARY HYPERSECRETION [None]
  - SEDATION [None]
  - SEXUAL DYSFUNCTION [None]
  - SOMNOLENCE [None]
  - URINARY INCONTINENCE [None]
